FAERS Safety Report 5531988-3 (Version None)
Quarter: 2007Q4

REPORT INFORMATION
  Report Type: 
  Country: None (occurrence: None)
  Receive Date: 20071203
  Receipt Date: 20071121
  Transmission Date: 20080405
  Serious: Yes (Death, Hospitalization)
  Sender: FDA-Public Use
  Company Number: CN-MERCK-0711USA05162

PATIENT
  Age: 13 Year
  Sex: Male

DRUGS (4)
  1. HYDROCORTONE [Suspect]
     Route: 042
  2. DEXAMETHASONE [Concomitant]
     Route: 042
  3. PREDNISONE [Concomitant]
     Route: 048
  4. NONSTEROIDAL ANTI-INFLAMMATORY DRUG (UNSPECIFIED) [Concomitant]
     Route: 065

REACTIONS (5)
  - ANAEMIA [None]
  - MARROW HYPERPLASIA [None]
  - PNEUMONIA [None]
  - STREPTOCOCCAL IDENTIFICATION TEST POSITIVE [None]
  - WEBER-CHRISTIAN DISEASE [None]
